FAERS Safety Report 7382854-2 (Version None)
Quarter: 2011Q1

REPORT INFORMATION
  Report Type: 
  Country: None (occurrence: None)
  Receive Date: 20110325
  Receipt Date: 20110325
  Transmission Date: 20110831
  Serious: Yes (Life-Threatening)
  Sender: FDA-Public Use
  Company Number: None

PATIENT
  Age: 52 Year
  Sex: Male
  Weight: 74.3899 kg

DRUGS (1)
  1. TRIAD ALCOHOL PADS TRIAD GROUP [Suspect]
     Dosage: ONE PAD WEEKLEY ONCE A WEEK
     Dates: start: 20101206, end: 20110228

REACTIONS (6)
  - BACTERIAL TEST POSITIVE [None]
  - INJECTION SITE RASH [None]
  - INJECTION SITE ERYTHEMA [None]
  - CELLULITIS [None]
  - PYREXIA [None]
  - INFECTION [None]
